FAERS Safety Report 11178233 (Version 2)
Quarter: 2015Q2

REPORT INFORMATION
  Report Type: Spontaneous
  Country: AR (occurrence: AR)
  Receive Date: 20150610
  Receipt Date: 20150623
  Transmission Date: 20150821
  Serious: Yes (Other)
  Sender: FDA-Public Use
  Company Number: CHPA2015AR007070

PATIENT
  Age: 55 Year
  Sex: Male

DRUGS (5)
  1. NICOTINELL [Suspect]
     Active Substance: NICOTINE
     Indication: SMOKING CESSATION THERAPY
     Dosage: 15 DF, QD
     Route: 048
     Dates: start: 201401
  2. NICOTINELL [Suspect]
     Active Substance: NICOTINE
     Dosage: 15 DF, QD
     Route: 062
     Dates: start: 201502, end: 201503
  3. NICOTINELL [Suspect]
     Active Substance: NICOTINE
     Dosage: 12 DF, UNK (4 MG)
     Route: 048
  4. NICOTINE TRANSDERMAL SYSTEM [Suspect]
     Active Substance: NICOTINE
     Indication: SMOKING CESSATION THERAPY
     Dosage: 3 DF, QD
     Route: 062
     Dates: start: 201401, end: 201403
  5. NICOTINE TRANSDERMAL SYSTEM [Suspect]
     Active Substance: NICOTINE
     Dosage: 3 DF, QD
     Route: 062
     Dates: start: 201503

REACTIONS (7)
  - Anxiety [Not Recovered/Not Resolved]
  - Nervousness [Unknown]
  - Vomiting [Not Recovered/Not Resolved]
  - Incorrect dose administered [Unknown]
  - Malaise [Unknown]
  - Drug dependence [Not Recovered/Not Resolved]
  - Drug ineffective [Unknown]

NARRATIVE: CASE EVENT DATE: 201503
